FAERS Safety Report 8127607-2 (Version None)
Quarter: 2012Q1

REPORT INFORMATION
  Report Type: 
  Country: None (occurrence: None)
  Receive Date: 20120210
  Receipt Date: 20120131
  Transmission Date: 20120608
  Serious: Yes (Other)
  Sender: FDA-Public Use
  Company Number: ES-SANOFI-AVENTIS-2012SA007285

PATIENT
  Sex: Female

DRUGS (2)
  1. DOCETAXEL [Suspect]
     Route: 042
  2. TRASTUZUMAB [Suspect]
     Route: 042

REACTIONS (17)
  - OEDEMA [None]
  - DIARRHOEA [None]
  - THROMBOCYTOPENIA [None]
  - MYALGIA [None]
  - NEUTROPENIA [None]
  - CARDIOTOXICITY [None]
  - HYPERGLYCAEMIA [None]
  - DEEP VEIN THROMBOSIS [None]
  - LEUKOPENIA [None]
  - INFECTION [None]
  - FEBRILE NEUTROPENIA [None]
  - ATRIAL FIBRILLATION [None]
  - HYPERSENSITIVITY [None]
  - ARTHRALGIA [None]
  - NAIL DISORDER [None]
  - VOMITING [None]
  - ANAEMIA [None]
